FAERS Safety Report 4568214-8 (Version None)
Quarter: 2005Q1

REPORT INFORMATION
  Report Type: 
  Country: None (occurrence: None)
  Receive Date: 20050131
  Receipt Date: 20050111
  Transmission Date: 20050727
  Serious: Yes (Hospitalization, Other)
  Sender: FDA-Public Use
  Company Number: 199808-0458

PATIENT
  Sex: Male

DRUGS (1)
  1. SUDAFED ELIXIR (PSEUDOEPHEDRINE) [Suspect]
     Dosage: ORAL
     Route: 048
     Dates: start: 19970801

REACTIONS (7)
  - ANAPHYLACTIC SHOCK [None]
  - CHOKING [None]
  - DRUG HYPERSENSITIVITY [None]
  - HYPERTENSION [None]
  - LOSS OF CONSCIOUSNESS [None]
  - RASH GENERALISED [None]
  - RENAL DISORDER [None]
